FAERS Safety Report 19632342 (Version 3)
Quarter: 2021Q3

REPORT INFORMATION
  Report Type: Spontaneous
  Country: US (occurrence: US)
  Receive Date: 20210729
  Receipt Date: 20210908
  Transmission Date: 20211014
  Serious: Yes (Hospitalization, Other)
  Sender: FDA-Public Use
  Company Number: US-ASTRAZENECA-2021A634601

PATIENT
  Age: 24808 Day
  Sex: Female
  Weight: 74.8 kg

DRUGS (20)
  1. FISH OIL [Concomitant]
     Active Substance: FISH OIL
  2. FENOFIBRATE. [Concomitant]
     Active Substance: FENOFIBRATE
  3. METOPROLOL. [Concomitant]
     Active Substance: METOPROLOL
  4. SPIRONOLACTONE. [Concomitant]
     Active Substance: SPIRONOLACTONE
  5. MAGNESIUM [Concomitant]
     Active Substance: MAGNESIUM
  6. HAIR/SKIN/NAILS PILL [Concomitant]
  7. IPRATROPIUM BROMIDE. [Concomitant]
     Active Substance: IPRATROPIUM BROMIDE
  8. MONTELUKAST [Concomitant]
     Active Substance: MONTELUKAST SODIUM
  9. BYETTA [Suspect]
     Active Substance: EXENATIDE
     Route: 065
  10. LOSARTAN. [Concomitant]
     Active Substance: LOSARTAN
  11. ALBUTEROL RESCUE INHALER [Concomitant]
  12. BYDUREON [Suspect]
     Active Substance: EXENATIDE
     Route: 065
  13. DEXILANT [Concomitant]
     Active Substance: DEXLANSOPRAZOLE
  14. METFORMIN HCL [Concomitant]
     Active Substance: METFORMIN HYDROCHLORIDE
  15. BYDUREON BCISE [Suspect]
     Active Substance: EXENATIDE
     Indication: DIABETES MELLITUS
     Route: 058
     Dates: start: 20210603
  16. JANUVIA [Concomitant]
     Active Substance: SITAGLIPTIN PHOSPHATE
  17. GLIPIZIDE. [Concomitant]
     Active Substance: GLIPIZIDE
  18. VITAMIN D3 [Concomitant]
     Active Substance: CHOLECALCIFEROL
  19. CLOPIDOGREL [Concomitant]
     Active Substance: CLOPIDOGREL BISULFATE
  20. ALBUTEROL SULFATE. [Concomitant]
     Active Substance: ALBUTEROL SULFATE
     Dosage: 0.5MG/3MG PER 3 ML

REACTIONS (8)
  - Skin laxity [Unknown]
  - Cerebrovascular accident [Recovered/Resolved]
  - Hepatic steatosis [Unknown]
  - Device leakage [Unknown]
  - Blindness [Recovered/Resolved]
  - Weight decreased [Unknown]
  - Device difficult to use [Unknown]
  - Dysgeusia [Unknown]

NARRATIVE: CASE EVENT DATE: 20210713
